FAERS Safety Report 6470960 (Version 13)
Quarter: 2013Q1

REPORT INFORMATION
  Report Type: Spontaneous
  Country: US (occurrence: US)
  Receive Date: 20071119
  Receipt Date: 20130102
  Transmission Date: 20140127
  Serious: Yes (Hospitalization, Congenital Anomaly, Other)
  Sender: FDA-Public Use
  Company Number: US-PFIZER INC-2007095297

PATIENT
  Sex: Female

DRUGS (15)
  1. ZOLOFT [Suspect]
     Indication: DEPRESSION
     Dosage: UNK
     Route: 064
     Dates: start: 20000724, end: 20030908
  2. ZOLOFT [Suspect]
     Dosage: UNK
     Route: 064
     Dates: start: 20031028
  3. PROMETHAZINE [Concomitant]
     Dosage: UNK
     Route: 064
  4. ZOFRAN [Concomitant]
     Dosage: UNK
     Route: 064
  5. PHENERGAN [Concomitant]
     Dosage: UNK
     Route: 064
  6. PRENATAL VITAMINS [Concomitant]
     Dosage: UNK
     Route: 064
  7. TYLENOL [Concomitant]
     Dosage: UNK
     Route: 064
  8. ADVAIR [Concomitant]
     Indication: COUGH
     Dosage: UNK
     Route: 064
     Dates: start: 20040426
  9. ADVAIR [Concomitant]
     Indication: DYSPNOEA
  10. ALBUTEROL [Concomitant]
     Indication: COUGH
     Dosage: UNK
     Route: 064
     Dates: start: 20040426
  11. ALBUTEROL [Concomitant]
     Indication: DYSPNOEA
  12. HYDROCODONE [Concomitant]
     Dosage: UNK
     Route: 064
  13. RANITIDINE [Concomitant]
     Dosage: UNK
     Route: 064
  14. TRIMOX [Concomitant]
     Dosage: UNK
     Route: 064
  15. AMOXICILLIN [Concomitant]
     Dosage: UNK
     Route: 064

REACTIONS (14)
  - Foetal exposure during pregnancy [Unknown]
  - Acute respiratory distress syndrome [Recovered/Resolved with Sequelae]
  - Congenital aortic anomaly [Unknown]
  - Patent ductus arteriosus [Unknown]
  - Laryngeal stenosis [Unknown]
  - Angiopathy [Unknown]
  - Upper airway obstruction [Unknown]
  - Stridor [Unknown]
  - Dehydration [Unknown]
  - Takayasu^s arteritis [Recovering/Resolving]
  - Congenital anomaly [Unknown]
  - Acute sinusitis [Unknown]
  - Viral upper respiratory tract infection [Unknown]
  - Underweight [Unknown]
